APPROVED DRUG PRODUCT: ARCAPTA NEOHALER
Active Ingredient: INDACATEROL MALEATE
Strength: EQ 75MCG BASE
Dosage Form/Route: POWDER;INHALATION
Application: N022383 | Product #001
Applicant: NOVARTIS PHARMACEUTICALS CORP
Approved: Jul 1, 2011 | RLD: Yes | RS: No | Type: DISCN

PATENTS:
Patent 8479730 | Expires: Oct 11, 2028